FAERS Safety Report 13461865 (Version 3)
Quarter: 2017Q3

REPORT INFORMATION
  Report Type: Report from Study
  Country: IT (occurrence: IT)
  Receive Date: 20170420
  Receipt Date: 20170811
  Transmission Date: 20171127
  Serious: Yes (Death, Hospitalization)
  Sender: FDA-Public Use
  Company Number: IT-PFIZER INC-2017160313

PATIENT
  Age: 70 Year
  Sex: Female
  Weight: 72 kg

DRUGS (16)
  1. SALINE /00075401/ [Concomitant]
     Active Substance: SODIUM CHLORIDE
     Indication: OEDEMA
  2. CRIZOTINIB [Suspect]
     Active Substance: CRIZOTINIB
     Dosage: 250 MG, 2X/DAY
     Dates: start: 20170112, end: 20170408
  3. DELTACORTENE [Concomitant]
     Active Substance: PREDNISONE
     Dosage: 12.5 MG, 1X/DAY
     Route: 048
     Dates: start: 20161110
  4. SALINE /00075401/ [Concomitant]
     Active Substance: SODIUM CHLORIDE
     Indication: RENAL FAILURE
     Dosage: UNK UNK, DAILY
     Route: 042
     Dates: start: 20170308, end: 20170309
  5. METOCLOPRAMIDE. [Concomitant]
     Active Substance: METOCLOPRAMIDE
     Indication: PROPHYLAXIS
     Dosage: UNK UNK, 1X/DAY
     Route: 048
     Dates: start: 20170207
  6. FUROSEMIDE. [Concomitant]
     Active Substance: FUROSEMIDE
     Indication: RENAL FAILURE
     Dosage: UNK UNK, DAILY
     Route: 042
     Dates: start: 20170329, end: 20170329
  7. CLEXANE [Concomitant]
     Active Substance: ENOXAPARIN SODIUM
     Indication: PROPHYLAXIS
     Dosage: 4000 IU, DAILY
     Route: 058
     Dates: start: 20170308
  8. RANITIDINE. [Concomitant]
     Active Substance: RANITIDINE
     Indication: PROPHYLAXIS
     Dosage: 300 MG, 1X/DAY
     Route: 048
     Dates: start: 20170207
  9. RAMIPRIL. [Concomitant]
     Active Substance: RAMIPRIL
     Dosage: 5 MG, 1X/DAY
     Route: 048
     Dates: start: 20170112
  10. JANUVIA [Concomitant]
     Active Substance: SITAGLIPTIN PHOSPHATE
     Dosage: 100 MG, 1X/DAY
     Route: 048
     Dates: start: 20160209
  11. PARACODEINE [Concomitant]
     Dosage: 20 GTT, 1X/DAY
     Route: 048
     Dates: start: 20161110
  12. ZOLOFT [Concomitant]
     Active Substance: SERTRALINE HYDROCHLORIDE
     Dosage: 50 MG, 1X/DAY
     Route: 048
     Dates: start: 20160105
  13. LANTUS [Concomitant]
     Active Substance: INSULIN GLARGINE
     Dosage: 12 IU, 1X/DAY
     Route: 048
     Dates: start: 20160209
  14. TIROXIN /00068002/ [Concomitant]
     Dosage: 50 UG, 1X/DAY
     Route: 048
     Dates: start: 20170207
  15. ZUGLIMET [Concomitant]
     Active Substance: METFORMIN HYDROCHLORIDE
     Dosage: 500 MG, 1X/DAY
     Route: 048
     Dates: start: 20170112
  16. FUROSEMIDE. [Concomitant]
     Active Substance: FUROSEMIDE
     Indication: OEDEMA

REACTIONS (3)
  - Pancreatitis [Recovered/Resolved]
  - Renal failure [Not Recovered/Not Resolved]
  - Dyspnoea [Fatal]

NARRATIVE: CASE EVENT DATE: 20170408
